FAERS Safety Report 8188692-5 (Version None)
Quarter: 2012Q1

REPORT INFORMATION
  Report Type: 
  Country: None (occurrence: None)
  Receive Date: 20120306
  Receipt Date: 20120228
  Transmission Date: 20120608
  Serious: Yes (Hospitalization)
  Sender: FDA-Public Use
  Company Number: NL-MEDIMMUNE-MEDI-0014795

PATIENT
  Sex: Male
  Weight: 3.405 kg

DRUGS (4)
  1. SYNAGIS [Suspect]
     Route: 030
     Dates: start: 20120131
  2. KAPSOVIT [Concomitant]
  3. NYSTATIN [Concomitant]
  4. SYNAGIS [Suspect]
     Indication: PREMATURE BABY
     Route: 030
     Dates: start: 20120103, end: 20120103

REACTIONS (2)
  - FOAMING AT MOUTH [None]
  - EXOPHTHALMOS [None]
